FAERS Safety Report 9074783 (Version 1)
Quarter: 2013Q1

REPORT INFORMATION
  Report Type: Report from Study
  Country: US (occurrence: US)
  Receive Date: 20130129
  Receipt Date: 20130129
  Transmission Date: 20140127
  Serious: No
  Sender: FDA-Public Use
  Company Number: US-ABBOTT-12P-163-0934319-00

PATIENT
  Sex: Female

DRUGS (1)
  1. LUPRON DEPOT 7.5 MG [Suspect]
     Indication: UTERINE LEIOMYOMA
     Dates: start: 201204

REACTIONS (4)
  - Menstrual disorder [Not Recovered/Not Resolved]
  - Breast tenderness [Not Recovered/Not Resolved]
  - Increased appetite [Not Recovered/Not Resolved]
  - Headache [Not Recovered/Not Resolved]
